FAERS Safety Report 7957716-X (Version None)
Quarter: 2011Q4

REPORT INFORMATION
  Report Type: 
  Country: None (occurrence: None)
  Receive Date: 20111205
  Receipt Date: 20111129
  Transmission Date: 20120403
  Serious: Yes (Hospitalization, Other)
  Sender: FDA-Public Use
  Company Number: PHEH2009US17998

PATIENT
  Sex: Male

DRUGS (7)
  1. ZOMETA [Suspect]
  2. MEDROL [Concomitant]
  3. LISINOPRIL [Concomitant]
     Dosage: 10 MG, UNK
     Route: 048
  4. GLIPIZIDE [Concomitant]
     Route: 048
  5. PROTONIX [Concomitant]
     Dosage: 40 MG, UNK
     Route: 048
  6. CARDURA [Concomitant]
     Route: 048
  7. LEVAQUIN [Concomitant]
     Dosage: 500 MG, UNK
     Route: 048

REACTIONS (41)
  - ANHEDONIA [None]
  - BRONCHITIS [None]
  - HYPERTENSION [None]
  - RENAL FAILURE CHRONIC [None]
  - LUNG NEOPLASM [None]
  - MITRAL VALVE INCOMPETENCE [None]
  - LOSS OF CONSCIOUSNESS [None]
  - SPINAL OSTEOARTHRITIS [None]
  - MULTIPLE MYELOMA [None]
  - OSTEONECROSIS OF JAW [None]
  - PAIN [None]
  - DISABILITY [None]
  - EMOTIONAL DISTRESS [None]
  - DYSPNOEA [None]
  - OSTEOARTHRITIS [None]
  - TRICUSPID VALVE INCOMPETENCE [None]
  - DIARRHOEA [None]
  - AORTIC CALCIFICATION [None]
  - BACK PAIN [None]
  - RECTAL HAEMORRHAGE [None]
  - ABDOMINAL DISTENSION [None]
  - SYNCOPE [None]
  - PNEUMONIA [None]
  - LUNG INFILTRATION [None]
  - ANAEMIA [None]
  - NEOPLASM PROSTATE [None]
  - HAEMATURIA [None]
  - COLITIS [None]
  - GASTRITIS [None]
  - IMPAIRED WORK ABILITY [None]
  - ABDOMINAL DISCOMFORT [None]
  - SEPSIS [None]
  - DECREASED APPETITE [None]
  - HYPONATRAEMIA [None]
  - CHRONIC SINUSITIS [None]
  - DEFORMITY [None]
  - HAEMORRHOIDS [None]
  - EXOSTOSIS [None]
  - HAEMATOCHEZIA [None]
  - GASTROENTERITIS [None]
  - DIABETES MELLITUS [None]
